FAERS Safety Report 11299509 (Version 1)
Quarter: 2015Q3

REPORT INFORMATION
  Report Type: Spontaneous
  Country: US (occurrence: US)
  Receive Date: 20150722
  Receipt Date: 20150722
  Transmission Date: 20151125
  Serious: No
  Sender: FDA-Public Use
  Company Number: US-ELI_LILLY_AND_COMPANY-US201212000705

PATIENT
  Sex: Male

DRUGS (2)
  1. HUMATROPE [Suspect]
     Active Substance: SOMATROPIN
     Indication: GROWTH HORMONE DEFICIENCY
     Dosage: 0.3 MG, QD
     Dates: start: 201203
  2. ANDROGEL [Concomitant]
     Active Substance: TESTOSTERONE

REACTIONS (7)
  - Fall [Unknown]
  - Back injury [Not Recovered/Not Resolved]
  - Incorrect dose administered [Recovered/Resolved]
  - Influenza [Unknown]
  - Sciatica [Unknown]
  - Incorrect dose administered [Unknown]
  - Feeling abnormal [Unknown]
